FAERS Safety Report 14742056 (Version 1)
Quarter: 2018Q2

REPORT INFORMATION
  Report Type: Spontaneous
  Country: US (occurrence: US)
  Receive Date: 20180410
  Receipt Date: 20180410
  Transmission Date: 20180711
  Serious: No
  Sender: FDA-Public Use
  Company Number: US-TEVA-2018-US-877714

PATIENT
  Age: 51 Year
  Sex: Female

DRUGS (3)
  1. LEVETIRACETAM. [Suspect]
     Active Substance: LEVETIRACETAM
     Indication: PARTIAL SEIZURES
     Dosage: 1500 MG/DAY
     Route: 065
  2. METHYLPREDNISOLONE. [Concomitant]
     Active Substance: METHYLPREDNISOLONE
     Dosage: HIGH DOSE THERAPY
     Route: 042
  3. LACOSAMIDE. [Concomitant]
     Active Substance: LACOSAMIDE
     Route: 065

REACTIONS (2)
  - Agitation [Unknown]
  - Delusion [Unknown]
